FAERS Safety Report 10196119 (Version 1)
Quarter: 2014Q2

REPORT INFORMATION
  Report Type: Spontaneous
  Country: US (occurrence: None)
  Receive Date: 20140522
  Receipt Date: 20140522
  Transmission Date: 20141212
  Serious: Yes (Other)
  Sender: FDA-Public Use
  Company Number: UNT-2014-000206

PATIENT
  Age: 65 Year
  Sex: Female

DRUGS (1)
  1. TYVASO (TREPROSTINIL SODIUM) NHALATION GAS, 0.6MG/ML [Suspect]
     Indication: PULMONARY ARTERIAL HYPERTENSION
     Route: 055
     Dates: start: 20140317

REACTIONS (3)
  - Dizziness [None]
  - Chest pain [None]
  - Oxygen saturation decreased [None]
